FAERS Safety Report 7555808-0 (Version None)
Quarter: 2011Q2

REPORT INFORMATION
  Report Type: 
  Country: None (occurrence: None)
  Receive Date: 20110618
  Receipt Date: 20110202
  Transmission Date: 20111010
  Serious: Yes (Death, Hospitalization, Other)
  Sender: FDA-Public Use
  Company Number: US-BAYER-201010659NA

PATIENT
  Age: 55 Year
  Sex: Male
  Weight: 91 kg

DRUGS (25)
  1. TRASYLOL [Suspect]
     Dosage: UNK
     Route: 042
     Dates: start: 20040212
  2. FUROSEMIDE [Concomitant]
     Dosage: 40 MG, QD
     Route: 048
     Dates: start: 20070201
  3. NIFEDIAC CC [Concomitant]
     Dosage: UNK
     Route: 048
     Dates: start: 20070201
  4. LIDOCAINE [Concomitant]
     Dosage: 100 MG, UNK
     Route: 042
     Dates: start: 20070316
  5. TRASYLOL [Suspect]
     Indication: STERNOTOMY
     Dosage: 3 ML, UNK
     Route: 042
     Dates: start: 20070316, end: 20070316
  6. TRASYLOL [Suspect]
     Indication: AORTIC VALVE REPLACEMENT
     Dosage: 400 ML/HR, UNK
     Route: 042
     Dates: start: 20070316, end: 20070316
  7. PROTAMINE SULFATE [Concomitant]
     Dosage: 250 MG, UNK
     Route: 042
     Dates: start: 20070316
  8. PREDNISONE [Concomitant]
     Dosage: 10 MG, BID
     Route: 048
     Dates: start: 20040101
  9. CEFURIN [Concomitant]
     Dosage: 3 G, UNK
     Route: 042
     Dates: start: 20070316
  10. VYTONE [Concomitant]
     Dosage: UNK
     Route: 048
     Dates: start: 20070201
  11. HEPARIN [Concomitant]
     Dosage: 2800 U, UNK
     Route: 042
     Dates: start: 20070316
  12. HYDRALAZINE HCL [Concomitant]
     Dosage: 5 MG, UNK
     Route: 042
     Dates: start: 20070316
  13. TRASYLOL [Suspect]
     Indication: CORONARY ARTERY BYPASS
     Dosage: 50 ML/HR, UNK
     Route: 042
     Dates: start: 20070316, end: 20070316
  14. ALTACE [Concomitant]
     Dosage: 10 MG, BID
     Route: 048
     Dates: start: 20040101
  15. GABAPENTIN [Concomitant]
     Dosage: 300 MG, HS
     Route: 048
     Dates: start: 20070201
  16. PLAQUENIL [Concomitant]
     Dosage: 200MG/5ML DAILY
     Route: 048
  17. COREG [Concomitant]
     Dosage: 12.5 X 1.5 MG, BID
     Route: 048
     Dates: start: 20070201
  18. DIPHENHYDRAMINE HCL [Concomitant]
     Dosage: 100 MG, UNK
     Route: 042
     Dates: start: 20070316
  19. FAMOTIDINE [Concomitant]
     Dosage: 20 MG, UNK
     Route: 042
     Dates: start: 20070316
  20. PANCURONIUM BROMIDE [Concomitant]
     Dosage: 10 MG, UNK
     Route: 042
     Dates: start: 20070316
  21. CALCIUM CHLORIDE [Concomitant]
     Dosage: 1000 MG, UNK
     Route: 042
     Dates: start: 20070316
  22. VERSED [Concomitant]
     Dosage: 5 MG, UNK
     Route: 042
     Dates: start: 20070316
  23. SUFENTA PRESERVATIVE FREE [Concomitant]
     Dosage: 1500 UQ, UNK
     Route: 042
     Dates: start: 20070316
  24. ASPIRIN [Concomitant]
     Dosage: UNK
     Route: 048
     Dates: start: 20070201
  25. TPN [Concomitant]
     Dosage: 600 ML, UNK
     Route: 042
     Dates: start: 20070316

REACTIONS (14)
  - DEATH [None]
  - ANXIETY [None]
  - FEAR [None]
  - INJURY [None]
  - MULTI-ORGAN FAILURE [None]
  - RENAL FAILURE [None]
  - CEREBROVASCULAR ACCIDENT [None]
  - RENAL IMPAIRMENT [None]
  - RENAL INJURY [None]
  - ANHEDONIA [None]
  - EMOTIONAL DISTRESS [None]
  - STRESS [None]
  - UNEVALUABLE EVENT [None]
  - PAIN [None]
